FAERS Safety Report 16666747 (Version 1)
Quarter: 2019Q3

REPORT INFORMATION
  Report Type: Spontaneous
  Country: US (occurrence: US)
  Receive Date: 20190805
  Receipt Date: 20190805
  Transmission Date: 20191004
  Serious: Yes (Other)
  Sender: FDA-Public Use
  Company Number: US-ACCORD-107845

PATIENT
  Sex: Female
  Weight: 70.76 kg

DRUGS (10)
  1. CYTOXAN [Suspect]
     Active Substance: CYCLOPHOSPHAMIDE
     Indication: BREAST CANCER
     Dates: start: 20150219, end: 20150423
  2. FOLIC ACID. [Concomitant]
     Active Substance: FOLIC ACID
  3. MINOXIDIL. [Concomitant]
     Active Substance: MINOXIDIL
  4. HYDROCODONE [Concomitant]
     Active Substance: HYDROCODONE
  5. NOVOLIN [Concomitant]
     Active Substance: INSULIN HUMAN
  6. SIMVASTATIN. [Concomitant]
     Active Substance: SIMVASTATIN
  7. FARXIGA [Concomitant]
     Active Substance: DAPAGLIFLOZIN PROPANEDIOL
  8. DOCETAXEL ACCORD [Suspect]
     Active Substance: DOCETAXEL
     Indication: BREAST CANCER
     Dates: start: 20150219, end: 20150423
  9. METFORMIN [Concomitant]
     Active Substance: METFORMIN HYDROCHLORIDE
  10. ZOLPIDEM [Concomitant]
     Active Substance: ZOLPIDEM TARTRATE

REACTIONS (1)
  - Alopecia [Not Recovered/Not Resolved]
